FAERS Safety Report 14958624 (Version 1)
Quarter: 2018Q2

REPORT INFORMATION
  Report Type: Spontaneous
  Country: US (occurrence: US)
  Receive Date: 20180509
  Receipt Date: 20180509
  Transmission Date: 20180711
  Serious: Yes (Other)
  Sender: FDA-Public Use
  Company Number: None

PATIENT
  Age: 45 Year
  Sex: Male
  Weight: 65.25 kg

DRUGS (8)
  1. RITEAID DIGESTIVE ENZYMES (N*ZIMES AND CERECALASE PROPRIETARY BLENDS) [Concomitant]
  2. METHYLCELLULOSE [Concomitant]
     Active Substance: METHYLCELLULOSES
  3. CALCIUM POLYCARBOPHIL. [Concomitant]
     Active Substance: CALCIUM POLYCARBOPHIL
  4. REMERON [Concomitant]
     Active Substance: MIRTAZAPINE
  5. LOPERAMIDE HCL [Concomitant]
     Active Substance: LOPERAMIDE HYDROCHLORIDE
  6. VENLAFAXINE [Concomitant]
     Active Substance: VENLAFAXINE HYDROCHLORIDE
  7. SMZ-TMP DS 800-160 MG TAB [Suspect]
     Active Substance: SULFAMETHOXAZOLE\TRIMETHOPRIM
     Indication: PROSTATE INFECTION
     Dosage: ?          QUANTITY:56 TABLET(S);?
     Route: 048
     Dates: start: 20180321, end: 20180418
  8. BEANO [Concomitant]
     Active Substance: ASPERGILLUS NIGER .ALPHA.-GALACTOSIDASE

REACTIONS (1)
  - Rash [None]

NARRATIVE: CASE EVENT DATE: 20180425
